FAERS Safety Report 11055892 (Version 1)
Quarter: 2015Q2

REPORT INFORMATION
  Report Type: Spontaneous
  Country: CO (occurrence: CO)
  Receive Date: 20150422
  Receipt Date: 20150422
  Transmission Date: 20150821
  Serious: Yes (Hospitalization, Other)
  Sender: FDA-Public Use
  Company Number: CO-JNJFOC-20150405587

PATIENT
  Age: 22 Year
  Sex: Male
  Weight: 46 kg

DRUGS (1)
  1. STELARA [Suspect]
     Active Substance: USTEKINUMAB
     Indication: PSORIASIS
     Route: 058
     Dates: start: 20121228

REACTIONS (5)
  - Hypercoagulation [Unknown]
  - Seizure [Unknown]
  - Heart disease congenital [Unknown]
  - Mitral valve replacement [Recovered/Resolved]
  - Post procedural pneumonia [Recovered/Resolved]

NARRATIVE: CASE EVENT DATE: 201503
